FAERS Safety Report 4709651-8 (Version None)
Quarter: 2005Q3

REPORT INFORMATION
  Report Type: 
  Country: None (occurrence: None)
  Receive Date: 20050707
  Receipt Date: 20050615
  Transmission Date: 20060218
  Serious: Yes (Hospitalization)
  Sender: FDA-Public Use
  Company Number: US_0411107577

PATIENT
  Age: 33 Year
  Sex: Female
  Weight: 111 kg

DRUGS (24)
  1. ZYPREXA [Suspect]
     Indication: SCHIZOPHRENIA
     Dosage: 20 MG/1 DAY
     Dates: start: 19960101, end: 20041007
  2. PROZAC [Concomitant]
  3. 12MG/50MG OLANZIPINE/FLUOXETINE CAPSULE [Concomitant]
  4. QUETIAPINE FUMARATE [Concomitant]
  5. ZIPRASIDONE [Concomitant]
  6. HALDOL (HALOPERIDOL DECANOATE) [Concomitant]
  7. DIVALPROEX SODIUM [Concomitant]
  8. CITALOPRAM HYDROBROMIDE [Concomitant]
  9. GLIPIZIDE [Concomitant]
  10. GLYBURIDE AND METFORMIN HCL [Concomitant]
  11. CELEXA [Concomitant]
  12. CHLORPROMAZINE HCL [Concomitant]
  13. PREMARIN [Concomitant]
  14. OMEPRAZOLE [Concomitant]
  15. CLONAZEPAM [Concomitant]
  16. CARAFATE [Concomitant]
  17. NEURONTIN [Concomitant]
  18. METAXALONE [Concomitant]
  19. PEPCID [Concomitant]
  20. SINEQUAN [Concomitant]
  21. TOPAMAX [Concomitant]
  22. WELLBUTRIN [Concomitant]
  23. TRAZADONE [Concomitant]
  24. PAROXETINE HCL [Concomitant]

REACTIONS (28)
  - ABDOMINAL PAIN [None]
  - ADNEXA UTERI MASS [None]
  - ANAEMIA [None]
  - BILIARY TRACT DISORDER [None]
  - BLOOD CHOLESTEROL ABNORMAL [None]
  - BLOOD TRIGLYCERIDES INCREASED [None]
  - CARPAL TUNNEL SYNDROME [None]
  - CHEST PAIN [None]
  - DEHYDRATION [None]
  - DIABETES MELLITUS [None]
  - DIZZINESS [None]
  - DYSFUNCTIONAL UTERINE BLEEDING [None]
  - DYSPNOEA [None]
  - HERPES ZOSTER [None]
  - HYPERGLYCAEMIA [None]
  - HYPERTHYROIDISM [None]
  - IRON DEFICIENCY ANAEMIA [None]
  - NAUSEA [None]
  - OBESITY [None]
  - PALPITATIONS [None]
  - TREATMENT NONCOMPLIANCE [None]
  - UTERINE CYST [None]
  - UTERINE ENLARGEMENT [None]
  - UTERINE POLYP [None]
  - VAGINAL HAEMORRHAGE [None]
  - VISION BLURRED [None]
  - VOMITING [None]
  - WEIGHT INCREASED [None]
